FAERS Safety Report 26091112 (Version 1)
Quarter: 2025Q4

REPORT INFORMATION
  Report Type: Spontaneous
  Country: GB (occurrence: GB)
  Receive Date: 20251126
  Receipt Date: 20251126
  Transmission Date: 20260118
  Serious: Yes (Hospitalization, Other)
  Sender: RANBAXY
  Company Number: GB-MHRA-MED-202511111447085870-WNVFD

PATIENT
  Age: 59 Year
  Sex: Female
  Weight: 101 kg

DRUGS (1)
  1. TICAGRELOR [Suspect]
     Active Substance: TICAGRELOR
     Indication: Adverse drug reaction
     Dosage: 90 MILLIGRAM, QD, 90MG ONCE A DAY
     Route: 065
     Dates: start: 20251004

REACTIONS (3)
  - Dizziness postural [Not Recovered/Not Resolved]
  - Dyspepsia [Not Recovered/Not Resolved]
  - Dyspnoea [Not Recovered/Not Resolved]

NARRATIVE: CASE EVENT DATE: 20251004
